FAERS Safety Report 7338979-0 (Version None)
Quarter: 2011Q1

REPORT INFORMATION
  Report Type: 
  Country: None (occurrence: None)
  Receive Date: 20110308
  Receipt Date: 20110224
  Transmission Date: 20110831
  Serious: Yes (Other)
  Sender: FDA-Public Use
  Company Number: AU-CELGENEUS-008-C5013-11021307

PATIENT
  Sex: Male
  Weight: 75.3 kg

DRUGS (11)
  1. ALLOPURINOL [Concomitant]
     Dosage: 100 MILLIGRAM
     Route: 048
     Dates: start: 20100101, end: 20101201
  2. TRAMADOL [Concomitant]
     Indication: BONE PAIN
     Dosage: 50 MILLIGRAM
     Route: 048
     Dates: start: 20080101, end: 20091126
  3. NITRAZEPAM [Concomitant]
     Indication: INSOMNIA
     Dosage: 5 MILLIGRAM
     Route: 048
     Dates: start: 20080101, end: 20101020
  4. CC-5013 [Suspect]
     Indication: MULTIPLE MYELOMA
     Dosage: 10 MILLIGRAM
     Route: 048
     Dates: start: 20101124
  5. ASPIRIN [Concomitant]
     Dosage: 100 MILLIGRAM
     Route: 048
     Dates: start: 20091013
  6. ZOLEDRONIC ACID [Concomitant]
     Indication: PROPHYLAXIS
     Dosage: 4 MILLIGRAM
     Route: 051
     Dates: start: 20100805
  7. ALLOPURINOL [Concomitant]
     Indication: GOUT
     Dosage: 300 MILLIGRAM
     Route: 048
     Dates: start: 19560101, end: 20100101
  8. ALLOPURINOL [Concomitant]
     Dosage: 50 MILLIGRAM
     Route: 048
     Dates: start: 20101202
  9. DEXAMETHASONE [Suspect]
     Indication: MULTIPLE MYELOMA
     Dosage: 20 MILLIGRAM
     Route: 065
     Dates: start: 20091001
  10. OSTELIN CALCIUM [Concomitant]
     Indication: PROPHYLAXIS
     Dosage: 12.5 MILLIGRAM
     Route: 048
     Dates: start: 20100805
  11. COLOXYL C SENNA [Concomitant]
     Indication: CONSTIPATION
     Dosage: 50/5 MG
     Route: 048
     Dates: start: 20091030

REACTIONS (1)
  - LUNG NEOPLASM MALIGNANT [None]
